FAERS Safety Report 9105696 (Version 2)
Quarter: 2013Q1

REPORT INFORMATION
  Report Type: Report from Study
  Country: US (occurrence: US)
  Receive Date: 20130221
  Receipt Date: 20130306
  Transmission Date: 20140127
  Serious: Yes (Hospitalization)
  Sender: FDA-Public Use
  Company Number: US-US-EMD SERONO, INC.-7192955

PATIENT
  Age: 25 Year
  Sex: Female
  Weight: 93 kg

DRUGS (2)
  1. REBIF [Suspect]
     Indication: MULTIPLE SCLEROSIS
     Route: 058
     Dates: start: 20120221, end: 20130123
  2. REBIF [Suspect]
     Route: 058
     Dates: start: 20130219

REACTIONS (2)
  - Multiple sclerosis [Recovering/Resolving]
  - Injection site bruising [Recovered/Resolved]
